FAERS Safety Report 5740224-4 (Version None)
Quarter: 2008Q2

REPORT INFORMATION
  Report Type: 
  Country: None (occurrence: None)
  Receive Date: 20080516
  Receipt Date: 20080508
  Transmission Date: 20081010
  Serious: Yes (Hospitalization)
  Sender: FDA-Public Use
  Company Number: PR-ABBOTT-08P-131-0451617-00

PATIENT
  Age: 9 Month
  Sex: Male

DRUGS (5)
  1. SYNAGIS [Suspect]
     Indication: DRUG USE FOR UNKNOWN INDICATION
  2. LEVOSALBUTAMOL [Concomitant]
     Indication: RESPIRATORY DISORDER
  3. BUDESONIDE [Concomitant]
     Indication: RESPIRATORY DISORDER
  4. BECLOMETHASONE DIPROPIONATE [Concomitant]
     Indication: RESPIRATORY DISORDER
     Dosage: IN OPTI CHAMBER
  5. RANITIDINE HYDROCHLORIDE [Concomitant]
     Indication: GASTROOESOPHAGEAL REFLUX DISEASE

REACTIONS (4)
  - BRONCHIOLITIS [None]
  - BRONCHITIS [None]
  - BRONCHOSPASM [None]
  - PERTUSSIS [None]
